FAERS Safety Report 8013172-7 (Version None)
Quarter: 2011Q4

REPORT INFORMATION
  Report Type: 
  Country: None (occurrence: None)
  Receive Date: 20111229
  Receipt Date: 20111215
  Transmission Date: 20120403
  Serious: Yes (Other)
  Sender: FDA-Public Use
  Company Number: GB-MYLANLABS-2011S1025756

PATIENT
  Age: 74 Year
  Sex: Male

DRUGS (2)
  1. OMEPRAZOLE [Suspect]
     Indication: PRODUCT USED FOR UNKNOWN INDICATION
     Dates: start: 20111001, end: 20111127
  2. DULOXETIME HYDROCHLORIDE [Suspect]
     Indication: PRODUCT USED FOR UNKNOWN INDICATION
     Dates: start: 20111126, end: 20111127

REACTIONS (3)
  - INAPPROPRIATE ANTIDIURETIC HORMONE SECRETION [None]
  - VOMITING [None]
  - NAUSEA [None]
